FAERS Safety Report 22872680 (Version 2)
Quarter: 2023Q4

REPORT INFORMATION
  Report Type: Spontaneous
  Country: US (occurrence: US)
  Receive Date: 20230828
  Receipt Date: 20231031
  Transmission Date: 20240110
  Serious: No
  Sender: FDA-Public Use
  Company Number: US-SA-SAC20230822000953

PATIENT
  Age: 10 Year
  Sex: Male

DRUGS (2)
  1. DUPIXENT [Suspect]
     Active Substance: DUPILUMAB
     Indication: Dermatitis atopic
     Dosage: 400 MG, 1X
     Route: 058
     Dates: start: 20230811, end: 20230811
  2. DUPIXENT [Suspect]
     Active Substance: DUPILUMAB
     Indication: Eczema
     Dosage: 200 MG, QOW
     Route: 058
     Dates: start: 202308

REACTIONS (8)
  - Eczema [Unknown]
  - Rash pruritic [Unknown]
  - Blister [Unknown]
  - Dry skin [Unknown]
  - Skin haemorrhage [Unknown]
  - Skin fissures [Unknown]
  - Drug ineffective [Unknown]
  - Injection site bruising [Unknown]

NARRATIVE: CASE EVENT DATE: 20230101
